FAERS Safety Report 9190340 (Version 2)
Quarter: 2014Q3

REPORT INFORMATION
  Report Type: Spontaneous
  Country: US (occurrence: US)
  Receive Date: 20130326
  Receipt Date: 20140729
  Transmission Date: 20150326
  Serious: Yes (Hospitalization)
  Sender: FDA-Public Use
  Company Number: US-BAYER-2013-036080

PATIENT
  Age: 50 Year
  Sex: Female
  Weight: 83.45 kg

DRUGS (8)
  1. MOTRIN [Concomitant]
     Active Substance: IBUPROFEN
  2. YAZ [Suspect]
     Active Substance: DROSPIRENONE\ETHINYL ESTRADIOL
  3. CELEXA [Concomitant]
     Active Substance: CITALOPRAM HYDROBROMIDE
  4. PRINIVIL [Concomitant]
     Active Substance: LISINOPRIL
  5. AMBIEN [Concomitant]
     Active Substance: ZOLPIDEM TARTRATE
  6. TYLENOL [Concomitant]
     Active Substance: ACETAMINOPHEN
  7. ZOCOR [Concomitant]
     Active Substance: SIMVASTATIN
  8. PROTONIX [Concomitant]
     Active Substance: PANTOPRAZOLE SODIUM

REACTIONS (3)
  - Injury [None]
  - Emotional distress [None]
  - Cerebrovascular accident [None]

NARRATIVE: CASE EVENT DATE: 20110110
